FAERS Safety Report 23609815 (Version 2)
Quarter: 2024Q1

REPORT INFORMATION
  Report Type: Spontaneous
  Country: US (occurrence: US)
  Receive Date: 20240308
  Receipt Date: 20240320
  Transmission Date: 20240409
  Serious: No
  Sender: FDA-Public Use
  Company Number: US-LUPIN PHARMACEUTICALS INC.-2024-01857

PATIENT
  Age: 10 Year
  Sex: Male

DRUGS (1)
  1. RIFAMPIN [Suspect]
     Active Substance: RIFAMPIN
     Indication: Product used for unknown indication
     Dosage: UNK, DICARD AFTER: 23-JAN-2025
     Route: 065
     Dates: end: 202403

REACTIONS (2)
  - Recalled product administered [Unknown]
  - No adverse event [Unknown]
